FAERS Safety Report 7186140-5 (Version None)
Quarter: 2010Q4

REPORT INFORMATION
  Report Type: 
  Country: None (occurrence: None)
  Receive Date: 20101222
  Receipt Date: 20101216
  Transmission Date: 20110411
  Serious: Yes (Hospitalization)
  Sender: FDA-Public Use
  Company Number: DE-ABBOTT-10P-062-0662080-00

PATIENT
  Sex: Female
  Weight: 61 kg

DRUGS (5)
  1. HUMIRA [Suspect]
     Indication: CROHN'S DISEASE
     Route: 058
     Dates: start: 20090812, end: 20101101
  2. AZATHIOPRIN [Concomitant]
     Indication: CROHN'S DISEASE
  3. BUDENOSID [Concomitant]
     Indication: CROHN'S DISEASE
  4. INFLIXIMAB [Concomitant]
     Indication: CROHN'S DISEASE
  5. NOVALGIN [Concomitant]
     Indication: PAIN
     Dates: start: 20010715

REACTIONS (11)
  - ABDOMINAL ADHESIONS [None]
  - ABDOMINAL PAIN [None]
  - ADHESIOLYSIS [None]
  - DYSGEUSIA [None]
  - HEADACHE [None]
  - HYPERHIDROSIS [None]
  - ILEUS [None]
  - INFLUENZA [None]
  - NAUSEA [None]
  - SLEEP DISORDER [None]
  - TACHYCARDIA [None]
